FAERS Safety Report 10420459 (Version 1)
Quarter: 2014Q3

REPORT INFORMATION
  Report Type: Spontaneous
  Country: US (occurrence: None)
  Receive Date: 20140701
  Receipt Date: 20140701
  Transmission Date: 20150326
  Serious: No
  Sender: FDA-Public Use
  Company Number: 1000067350

PATIENT
  Age: 65 Year
  Sex: Female

DRUGS (3)
  1. LINZESS [Suspect]
     Active Substance: LINACLOTIDE
     Indication: CONSTIPATION
     Dosage: 145 MCG ( 145 MCG, 1 IN 1 D), ORAL
     Route: 048
     Dates: start: 201404, end: 201405
  2. MIRALAX ( POLYETHYLENE GLYCOL) ( POLYETHYLENE GLYCOL) [Concomitant]
  3. ABILIFY ( ARIPIPRAZOLE) (ARIPIPRAZOLE) [Concomitant]

REACTIONS (3)
  - Faecal incontinence [None]
  - Anorectal disorder [None]
  - Diarrhoea [None]

NARRATIVE: CASE EVENT DATE: 2014
